FAERS Safety Report 5395480-1 (Version None)
Quarter: 2007Q3

REPORT INFORMATION
  Report Type: 
  Country: None (occurrence: None)
  Receive Date: 20070724
  Receipt Date: 20070720
  Transmission Date: 20080115
  Serious: Yes (Hospitalization)
  Sender: FDA-Public Use
  Company Number: D0053729A

PATIENT
  Age: 1 Day
  Sex: Female
  Weight: 2.6 kg

DRUGS (1)
  1. RETROVIR [Suspect]
     Dosage: 52MG PER DAY
     Route: 048
     Dates: start: 20070622

REACTIONS (2)
  - ACCIDENTAL OVERDOSE [None]
  - NO ADVERSE DRUG REACTION [None]
